FAERS Safety Report 4542192-X (Version None)
Quarter: 2004Q4

REPORT INFORMATION
  Report Type: 
  Country: None (occurrence: None)
  Receive Date: 20041227
  Receipt Date: 20041220
  Transmission Date: 20050328
  Serious: Yes (Other)
  Sender: FDA-Public Use
  Company Number: 205376

PATIENT
  Age: 42 Year
  Sex: Female
  Weight: 50 kg

DRUGS (3)
  1. MABTHERA (RITUXIMAB) CONC FOR [Suspect]
     Indication: THROMBOTIC THROMBOCYTOPENIC PURPURA
     Dosage: 550 MG
     Dates: start: 20040311, end: 20040401
  2. BENZTHIAZIDE (BENZTHIAZIDE) [Concomitant]
  3. CO-DYDRAMOL (DIHYDROCODEINE BITARTRATE, [Concomitant]

REACTIONS (1)
  - MYOCLONUS [None]
